FAERS Safety Report 14674935 (Version 1)
Quarter: 2018Q1

REPORT INFORMATION
  Report Type: Spontaneous
  Country: GB (occurrence: GB)
  Receive Date: 20180323
  Receipt Date: 20180323
  Transmission Date: 20180509
  Serious: Yes (Death, Hospitalization)
  Sender: FDA-Public Use
  Company Number: GB-IGSA-SR10006051

PATIENT
  Age: 64 Year
  Sex: Female
  Weight: 95 kg

DRUGS (17)
  1. PROPOFOL. [Concomitant]
     Active Substance: PROPOFOL
     Dosage: ()
  2. GAMUNEX [Suspect]
     Active Substance: HUMAN IMMUNOGLOBULIN G
     Indication: GUILLAIN-BARRE SYNDROME
     Dosage: (3 DOSES)
     Route: 042
     Dates: start: 20180301, end: 20180303
  3. DEXCEL-PHARMA ISOSORBIDE MONONITRATE [Concomitant]
     Dosage: ()
  4. OMEPRAZOLE. [Concomitant]
     Active Substance: OMEPRAZOLE
     Dosage: ()
  5. ACETYLSALICYLIC ACID [Concomitant]
     Active Substance: ASPIRIN
     Dosage: ()
  6. IPRATROPIUM BROMIDE. [Concomitant]
     Active Substance: IPRATROPIUM BROMIDE
     Dosage: ()
  7. ATORVASTATIN [Concomitant]
     Active Substance: ATORVASTATIN
     Dosage: ()
  8. LACTULOSE. [Concomitant]
     Active Substance: LACTULOSE
     Dosage: ()
  9. SALBUTAMOL [Concomitant]
     Active Substance: ALBUTEROL
     Dosage: ()
  10. CANDESARTAN. [Concomitant]
     Active Substance: CANDESARTAN
     Dosage: ()
  11. IVABRADINE HYDROCHLORIDE [Concomitant]
     Active Substance: IVABRADINE HYDROCHLORIDE
     Dosage: ()
  12. INDAPAMIDE. [Concomitant]
     Active Substance: INDAPAMIDE
     Dosage: ()
  13. ENOXAPARIN SODIUM. [Concomitant]
     Active Substance: ENOXAPARIN SODIUM
     Dosage: ()
  14. AMLODIPINE [Concomitant]
     Active Substance: AMLODIPINE BESYLATE
     Dosage: ()
  15. NOREPINEPHRINE. [Concomitant]
     Active Substance: NOREPINEPHRINE
     Dosage: ()
  16. ALFENTANIL. [Concomitant]
     Active Substance: ALFENTANIL
     Dosage: ()
  17. SERTRALINE [Concomitant]
     Active Substance: SERTRALINE HYDROCHLORIDE
     Dosage: ()

REACTIONS (5)
  - Acute kidney injury [Fatal]
  - Vomiting [Not Recovered/Not Resolved]
  - Abdominal distension [Not Recovered/Not Resolved]
  - Intestinal infarction [Fatal]
  - Hepatic infarction [Not Recovered/Not Resolved]

NARRATIVE: CASE EVENT DATE: 20180305
